FAERS Safety Report 8448772-3 (Version None)
Quarter: 2012Q2

REPORT INFORMATION
  Report Type: 
  Country: None (occurrence: None)
  Receive Date: 20120611
  Receipt Date: 20120524
  Transmission Date: 20120825
  Serious: Yes (Hospitalization, Other)
  Sender: FDA-Public Use
  Company Number: ADR-2010-9472

PATIENT
  Sex: Male

DRUGS (1)
  1. BACLOFEN [Suspect]
     Indication: MUSCLE SPASTICITY
     Dosage: DAILY, INTRATH
     Route: 037

REACTIONS (6)
  - FALL [None]
  - CEREBRAL HAEMORRHAGE [None]
  - DIZZINESS [None]
  - SURGICAL PROCEDURE REPEATED [None]
  - FEMUR FRACTURE [None]
  - CONTUSION [None]
